FAERS Safety Report 25776268 (Version 1)
Quarter: 2025Q3

REPORT INFORMATION
  Report Type: Spontaneous
  Country: US (occurrence: US)
  Receive Date: 20250909
  Receipt Date: 20250909
  Transmission Date: 20251020
  Serious: No
  Sender: DOMPE FARMACEUTICI
  Company Number: US-FARMAPROD-202502-0533

PATIENT
  Sex: Male
  Weight: 52.48 kg

DRUGS (21)
  1. OXERVATE [Suspect]
     Active Substance: CENEGERMIN-BKBJ
     Indication: Ulcerative keratitis
     Route: 047
     Dates: start: 20241211
  2. MIRTAZAPINE [Concomitant]
     Active Substance: MIRTAZAPINE
  3. ALBUTEROL SULFATE [Concomitant]
     Active Substance: ALBUTEROL SULFATE
  4. ROBITUSSIN COUGH-SORE THROAT [Concomitant]
  5. PEPCID [Concomitant]
     Active Substance: FAMOTIDINE
  6. THERAGRAN-M PREMIER 50 PLUS [Concomitant]
  7. .BETA.-HYDROXYISOVALERIC ACID\ARGININE\GLUTAMINE [Concomitant]
     Active Substance: .BETA.-HYDROXYISOVALERIC ACID\ARGININE\GLUTAMINE
  8. MEDICAL FOOD [Concomitant]
     Active Substance: MEDICAL FOOD
  9. METAMUCIL [Concomitant]
     Active Substance: PLANTAGO SEED
  10. REMERON [Concomitant]
     Active Substance: MIRTAZAPINE
  11. IMODIUM [Concomitant]
     Active Substance: LOPERAMIDE HYDROCHLORIDE
  12. SODIUM CHLORIDE [Concomitant]
     Active Substance: SODIUM CHLORIDE
  13. SERTRALINE HYDROCHLORIDE [Concomitant]
     Active Substance: SERTRALINE HYDROCHLORIDE
  14. KLONOPIN [Concomitant]
     Active Substance: CLONAZEPAM
  15. AMIODARONE HYDROCHLORIDE [Concomitant]
     Active Substance: AMIODARONE HYDROCHLORIDE
  16. LOSARTAN POTASSIUM [Concomitant]
     Active Substance: LOSARTAN POTASSIUM
  17. TAMSULOSIN HYDROCHLORIDE [Concomitant]
     Active Substance: TAMSULOSIN HYDROCHLORIDE
  18. GABAPENTIN [Concomitant]
     Active Substance: GABAPENTIN
  19. LOMOTIL [Concomitant]
     Active Substance: ATROPINE SULFATE\DIPHENOXYLATE HYDROCHLORIDE
  20. ELIQUIS [Concomitant]
     Active Substance: APIXABAN
  21. GATTEX [Concomitant]
     Active Substance: TEDUGLUTIDE\WATER

REACTIONS (1)
  - Wound infection [Unknown]
